FAERS Safety Report 12811390 (Version 2)
Quarter: 2016Q4

REPORT INFORMATION
  Report Type: Report from Study
  Country: None (occurrence: US)
  Receive Date: 20161005
  Receipt Date: 20161110
  Transmission Date: 20170207
  Serious: Yes (Other)
  Sender: FDA-Public Use
  Company Number: US-ABBVIE-16K-163-1712587-00

PATIENT
  Age: 51 Year
  Sex: Female
  Weight: 155.72 kg

DRUGS (2)
  1. HUMIRA [Suspect]
     Active Substance: ADALIMUMAB
     Route: 058
     Dates: start: 2016
  2. HUMIRA [Suspect]
     Active Substance: ADALIMUMAB
     Indication: RHEUMATOID ARTHRITIS
     Route: 058
     Dates: start: 20160712, end: 201608

REACTIONS (18)
  - Joint swelling [Not Recovered/Not Resolved]
  - Arthralgia [Not Recovered/Not Resolved]
  - Chest pain [Recovered/Resolved]
  - Dyspnoea [Recovered/Resolved]
  - Activities of daily living impaired [Unknown]
  - Injection site pain [Unknown]
  - Ear infection [Recovered/Resolved]
  - Anxiety [Not Recovered/Not Resolved]
  - Lung neoplasm [Unknown]
  - Gait disturbance [Not Recovered/Not Resolved]
  - Pain [Not Recovered/Not Resolved]
  - Pulmonary embolism [Unknown]
  - Dysstasia [Unknown]
  - Overweight [Not Recovered/Not Resolved]
  - Joint stiffness [Not Recovered/Not Resolved]
  - Diabetes mellitus [Not Recovered/Not Resolved]
  - Pulmonary thrombosis [Unknown]
  - Pulmonary vascular disorder [Unknown]

NARRATIVE: CASE EVENT DATE: 2016
